FAERS Safety Report 13421960 (Version 3)
Quarter: 2017Q2

REPORT INFORMATION
  Report Type: Spontaneous
  Country: US (occurrence: US)
  Receive Date: 20170410
  Receipt Date: 20170426
  Transmission Date: 20170830
  Serious: No
  Sender: FDA-Public Use
  Company Number: US-PFIZER INC-2017150115

PATIENT
  Age: 67 Year
  Sex: Male
  Weight: 98.41 kg

DRUGS (2)
  1. SUTENT [Suspect]
     Active Substance: SUNITINIB MALATE
     Indication: METASTATIC RENAL CELL CARCINOMA
     Dosage: 50 MG, CYCLIC (2 WEEKS ON/1 WEEK OFF, DAY1-14 Q, 21 DAYS)
     Route: 048
     Dates: start: 20170401
  2. ACIDOPHILUS [Concomitant]
     Active Substance: LACTOBACILLUS ACIDOPHILUS
     Dosage: UNK

REACTIONS (10)
  - Abdominal discomfort [Unknown]
  - Stomatitis [Unknown]
  - Palpitations [Unknown]
  - Extrasystoles [Unknown]
  - Feeling hot [Unknown]
  - Pre-existing condition improved [Unknown]
  - Paraesthesia [Unknown]
  - Therapeutic response unexpected [Unknown]
  - Glossodynia [Unknown]
  - Nausea [Unknown]
